FAERS Safety Report 18825987 (Version 1)
Quarter: 2021Q1

REPORT INFORMATION
  Report Type: Other
  Country: US (occurrence: US)
  Receive Date: 20210202
  Receipt Date: 20210202
  Transmission Date: 20210419
  Serious: Yes (Death)
  Sender: FDA-Public Use
  Company Number: US-INTELLIPHARMACEUTICS CORP.-2106197

PATIENT
  Age: 52 Year
  Sex: Female

DRUGS (18)
  1. DOXYCYCLINE. [Suspect]
     Active Substance: DOXYCYCLINE
     Route: 048
  2. LEFLUNOMIDE. [Suspect]
     Active Substance: LEFLUNOMIDE
     Route: 048
  3. LITHIUM. [Suspect]
     Active Substance: LITHIUM
     Route: 048
  4. QUETIAPINE FUMARATE. [Suspect]
     Active Substance: QUETIAPINE FUMARATE
     Indication: PRODUCT USED FOR UNKNOWN INDICATION
     Route: 048
  5. LORAZEPAM. [Suspect]
     Active Substance: LORAZEPAM
     Route: 048
  6. CIPROFLOXACIN. [Suspect]
     Active Substance: CIPROFLOXACIN
     Route: 048
  7. NITROFURANTOIN. [Suspect]
     Active Substance: NITROFURANTOIN
     Route: 048
  8. PAMELOR [Suspect]
     Active Substance: NORTRIPTYLINE HYDROCHLORIDE
     Route: 048
  9. ANAFRANIL [Suspect]
     Active Substance: CLOMIPRAMINE HYDROCHLORIDE
     Route: 048
  10. INDOMETHACIN. [Suspect]
     Active Substance: INDOMETHACIN
     Route: 048
  11. OLANZAPINE. [Suspect]
     Active Substance: OLANZAPINE
     Route: 048
  12. HYOSCYAMINE. [Suspect]
     Active Substance: HYOSCYAMINE
     Route: 048
  13. DIAZEPAM. [Suspect]
     Active Substance: DIAZEPAM
     Route: 048
  14. ESCITALOPRAM [Suspect]
     Active Substance: ESCITALOPRAM OXALATE
     Route: 048
  15. TRAZODONE [Suspect]
     Active Substance: TRAZODONE HYDROCHLORIDE
     Route: 048
  16. BUPROPION. [Suspect]
     Active Substance: BUPROPION
     Route: 048
  17. PREGABALIN. [Suspect]
     Active Substance: PREGABALIN
     Route: 048
  18. CLONAZEPAM. [Suspect]
     Active Substance: CLONAZEPAM
     Route: 048

REACTIONS (1)
  - Completed suicide [Fatal]

NARRATIVE: CASE EVENT DATE: 2019
